FAERS Safety Report 14372218 (Version 2)
Quarter: 2018Q1

REPORT INFORMATION
  Report Type: Spontaneous
  Country: CN (occurrence: CN)
  Receive Date: 20180110
  Receipt Date: 20180125
  Transmission Date: 20180509
  Serious: Yes (Death, Hospitalization, Other)
  Sender: FDA-Public Use
  Company Number: CN-MYLANLABS-2017M1083723

PATIENT
  Age: 1 Year
  Sex: Female

DRUGS (3)
  1. VINCRISTINE [Concomitant]
     Active Substance: VINCRISTINE
     Indication: OVARIAN GERM CELL ENDODERMAL SINUS TUMOUR STAGE II
     Dosage: 1.5MG/M2 D1 AND 7
  2. CISPLATIN. [Suspect]
     Active Substance: CISPLATIN
     Indication: PRODUCT USED FOR UNKNOWN INDICATION
     Dosage: 500 MG/ME2
     Route: 065
  3. BLEOMYCIN [Concomitant]
     Active Substance: BLEOMYCIN SULFATE
     Indication: OVARIAN GERM CELL ENDODERMAL SINUS TUMOUR STAGE II
     Dosage: 10MG/M2 D1 AND 7

REACTIONS (15)
  - Wrong drug administered [Fatal]
  - Renal failure [Fatal]
  - Accidental overdose [Fatal]
  - Nausea [Unknown]
  - Somnolence [Unknown]
  - Cardiac arrest [Fatal]
  - Vomiting [Unknown]
  - Deafness [Unknown]
  - Epistaxis [Unknown]
  - Coma [Fatal]
  - Melaena [Unknown]
  - Haematuria [Unknown]
  - Visual impairment [Unknown]
  - Ecchymosis [Unknown]
  - Hyperkalaemia [Unknown]
